FAERS Safety Report 8510474-2 (Version None)
Quarter: 2012Q3

REPORT INFORMATION
  Report Type: 
  Country: None (occurrence: None)
  Receive Date: 20120715
  Receipt Date: 20120710
  Transmission Date: 20120928
  Serious: Yes (Hospitalization)
  Sender: FDA-Public Use
  Company Number: PHHY2012DK059118

PATIENT
  Sex: Female
  Weight: 43 kg

DRUGS (1)
  1. LEVONORGESTREL AND ETHINYL ESTRADIOL [Suspect]
     Indication: CONTRACEPTION
     Dosage: 150/30
     Route: 048
     Dates: start: 20120406, end: 20120601

REACTIONS (15)
  - OCULAR ICTERUS [None]
  - LYMPHOCYTE COUNT INCREASED [None]
  - YELLOW SKIN [None]
  - BLOOD CALCIUM DECREASED [None]
  - BLOOD ALBUMIN DECREASED [None]
  - BLOOD UREA DECREASED [None]
  - NAUSEA [None]
  - RASH [None]
  - HEPATOMEGALY [None]
  - FATIGUE [None]
  - ARTHRALGIA [None]
  - VOMITING [None]
  - SPLEEN DISORDER [None]
  - GALLBLADDER DISORDER [None]
  - PLATELET COUNT INCREASED [None]
